FAERS Safety Report 5131657-8 (Version None)
Quarter: 2006Q4

REPORT INFORMATION
  Report Type: 
  Country: None (occurrence: None)
  Receive Date: 20061020
  Receipt Date: 20061012
  Transmission Date: 20070319
  Serious: Yes (Other)
  Sender: FDA-Public Use
  Company Number: US-ABBOTT-06P-163-0346974-00

PATIENT
  Sex: Female

DRUGS (6)
  1. SYNTHROID [Suspect]
     Indication: DRUG USE FOR UNKNOWN INDICATION
     Route: 065
  2. POLIGRIP [Suspect]
     Indication: TOOTH DISORDER
     Route: 065
     Dates: start: 20060915, end: 20060915
  3. POLIGRIP [Suspect]
     Indication: DENTURE WEARER
  4. PROPAFENONE HYDROCHLORIDE [Concomitant]
     Indication: DRUG USE FOR UNKNOWN INDICATION
     Route: 065
  5. ATORVASTATIN CALCIUM [Concomitant]
     Indication: DRUG USE FOR UNKNOWN INDICATION
     Route: 065
  6. BENZOCAINE [Concomitant]
     Indication: DRUG USE FOR UNKNOWN INDICATION
     Route: 065
     Dates: start: 20060916

REACTIONS (14)
  - ABDOMINAL PAIN UPPER [None]
  - ASTHMA [None]
  - ATRIAL FIBRILLATION [None]
  - BLOOD PRESSURE INCREASED [None]
  - DYSPNOEA [None]
  - EYE SWELLING [None]
  - FEELING ABNORMAL [None]
  - HYPERSENSITIVITY [None]
  - LOSS OF CONSCIOUSNESS [None]
  - OVERDOSE [None]
  - STOMACH DISCOMFORT [None]
  - SWELLING FACE [None]
  - THROAT TIGHTNESS [None]
  - VISION BLURRED [None]
